FAERS Safety Report 5573563-0 (Version None)
Quarter: 2007Q4

REPORT INFORMATION
  Report Type: 
  Country: None (occurrence: None)
  Receive Date: 20071220
  Receipt Date: 20071220
  Transmission Date: 20080405
  Serious: Yes (Other)
  Sender: FDA-Public Use
  Company Number: None

PATIENT
  Age: 71 Year
  Sex: Male
  Weight: 82.5547 kg

DRUGS (4)
  1. VERAPAMIL    180MG  SR [Suspect]
     Indication: HYPERTENSION
     Dosage: 180MG  DAILY  PO
     Route: 048
     Dates: start: 20071028, end: 20071104
  2. CELEBREX [Concomitant]
  3. HYDROCHLOROTHIAZIDE [Concomitant]
  4. LISINOPRIL [Concomitant]

REACTIONS (2)
  - DYSPNOEA [None]
  - NIGHTMARE [None]
